FAERS Safety Report 6651623-0 (Version None)
Quarter: 2010Q1

REPORT INFORMATION
  Report Type: 
  Country: None (occurrence: None)
  Receive Date: 20100325
  Receipt Date: 20100316
  Transmission Date: 20100710
  Serious: Yes (Death, Other)
  Sender: FDA-Public Use
  Company Number: IT-GENZYME-CLOF-1000849

PATIENT
  Weight: 76 kg

DRUGS (10)
  1. EVOLTRA [Suspect]
     Indication: ACUTE MYELOID LEUKAEMIA
     Dosage: 40 MG, QDX5
     Route: 042
     Dates: start: 20091029, end: 20091102
  2. EVOLTRA [Suspect]
     Dosage: 40 MG, QDX5
     Route: 042
     Dates: start: 20091202, end: 20091206
  3. ARA-C [Suspect]
     Indication: ACUTE MYELOID LEUKAEMIA
     Dosage: 3.6 G, QDX5
     Route: 042
     Dates: start: 20091001, end: 20091001
  4. ARA-C [Suspect]
     Dosage: 3.6 G, QD
     Route: 042
     Dates: start: 20091202
  5. ARA-C [Suspect]
     Dosage: 1.8 G, QDX3
     Route: 065
     Dates: start: 20091005, end: 20091007
  6. FLUDARABINE PHOSPHATE [Concomitant]
     Indication: ACUTE MYELOID LEUKAEMIA
     Dosage: 45 MG, QDX3
     Route: 065
     Dates: start: 20091005, end: 20091007
  7. MYLOTARG [Concomitant]
     Indication: ACUTE MYELOID LEUKAEMIA
     Dosage: 5 MG, QD
     Route: 065
     Dates: start: 20091008, end: 20091008
  8. AMPHOTERICIN B [Concomitant]
     Indication: DRUG USE FOR UNKNOWN INDICATION
  9. LEVOXACIN [Concomitant]
     Indication: DRUG USE FOR UNKNOWN INDICATION
  10. NEUPOGEN [Concomitant]
     Indication: DRUG USE FOR UNKNOWN INDICATION

REACTIONS (3)
  - SEPSIS [None]
  - THROMBOCYTOPENIA [None]
  - VENOOCCLUSIVE DISEASE [None]
